FAERS Safety Report 25359792 (Version 2)
Quarter: 2025Q2

REPORT INFORMATION
  Report Type: Spontaneous
  Country: ES (occurrence: ES)
  Receive Date: 20250526
  Receipt Date: 20250611
  Transmission Date: 20250716
  Serious: Yes (Other)
  Sender: ELI LILLY AND COMPANY
  Company Number: ES-SA-2025SA094540

PATIENT
  Age: 73 Year
  Sex: Female

DRUGS (10)
  1. HUMALOG [Suspect]
     Active Substance: INSULIN LISPRO
     Indication: Type 2 diabetes mellitus
     Dosage: 6-8-6 IU DAILY
     Route: 058
  2. INSULIN GLARGINE [Suspect]
     Active Substance: INSULIN GLARGINE
     Indication: Type 2 diabetes mellitus
     Dosage: UNK UNK, DAILY
     Route: 065
     Dates: start: 2015
  3. INSULIN GLARGINE [Suspect]
     Active Substance: INSULIN GLARGINE
     Indication: Type 2 diabetes mellitus
     Dosage: 52 IU, QD
     Route: 058
     Dates: start: 20250305
  4. INSULIN GLARGINE [Suspect]
     Active Substance: INSULIN GLARGINE
     Dosage: 52 IU, QD
     Route: 058
     Dates: start: 20250305
  5. TRULICITY [Concomitant]
     Active Substance: DULAGLUTIDE
     Indication: Weight decreased
  6. LYRICA [Concomitant]
     Active Substance: PREGABALIN
     Indication: Osteoarthritis
     Route: 048
  7. LYRICA [Concomitant]
     Active Substance: PREGABALIN
     Indication: Fibromyalgia
  8. CRESTOR [Concomitant]
     Active Substance: ROSUVASTATIN CALCIUM
     Indication: Blood cholesterol
     Dosage: UNK, BID
     Route: 048
  9. VENOKAN [Concomitant]
     Indication: Muscle strength abnormal
  10. CISTITUS [Concomitant]
     Indication: Urinary tract infection
     Dosage: UNK, DAILY
     Route: 048

REACTIONS (19)
  - Syncope [Unknown]
  - Norovirus infection [Recovered/Resolved]
  - Immune system disorder [Recovered/Resolved]
  - Influenza [Recovered/Resolved]
  - Feeding disorder [Recovered/Resolved]
  - Hypertension [Not Recovered/Not Resolved]
  - Nervousness [Recovered/Resolved]
  - Memory impairment [Not Recovered/Not Resolved]
  - Weight loss poor [Not Recovered/Not Resolved]
  - Hepatic steatosis [Unknown]
  - Diverticulum intestinal [Not Recovered/Not Resolved]
  - Cholelithiasis [Not Recovered/Not Resolved]
  - Varicose vein [Not Recovered/Not Resolved]
  - Hyperglycaemia [Recovered/Resolved]
  - Asthenia [Unknown]
  - Infection [Recovered/Resolved]
  - Injection site haematoma [Recovered/Resolved]
  - Palpitations [Recovered/Resolved]
  - Hypoglycaemia [Recovered/Resolved]
